FAERS Safety Report 7690461-7 (Version None)
Quarter: 2011Q3

REPORT INFORMATION
  Report Type: 
  Country: None (occurrence: None)
  Receive Date: 20110812
  Receipt Date: 20110802
  Transmission Date: 20111222
  Serious: Yes (Life-Threatening, Disabling, Other)
  Sender: FDA-Public Use
  Company Number: 2011HGS-002406

PATIENT
  Age: 69 Year
  Sex: Female
  Weight: 70 kg

DRUGS (20)
  1. DEXA METHADROL (METHYLPREDNISOLONE) [Concomitant]
  2. LEXAPRO [Concomitant]
  3. SPIRIVA [Concomitant]
  4. FENTANYL [Concomitant]
  5. CYCLOSPORINE [Concomitant]
  6. ACYCLOVIR [Concomitant]
  7. SAVELLA (MILNACIPRAN HYDROCHLORIDE) (MILNACIPRAN HYDROCHLORIDE) [Concomitant]
  8. XANAX [Concomitant]
  9. OMEPRAZOLE [Concomitant]
  10. FOSAMAX [Concomitant]
  11. BENADRYL [Concomitant]
  12. ADDERALL (OBETROL) (DEXAMETHAMINE SULFATE, AMFETAMINE SULFATE, DEXAMFE [Concomitant]
  13. ZYPREXA [Concomitant]
  14. LYRICA [Concomitant]
  15. WELLBUTRIN XL [Concomitant]
  16. LORTAB (VICODIN) (PARACETAMOL, HYDROCODONE BITARTRATE) [Concomitant]
  17. BENLYSTA [Suspect]
     Indication: SYSTEMIC LUPUS ERYTHEMATOSUS
     Dosage: 800 MG, 1 IN 14 D, INTRAVENOUS
     Route: 042
     Dates: start: 20110630, end: 20110630
  18. PROCARDIA XL [Concomitant]
  19. SYNTHROID [Concomitant]
  20. VITAMIN D [Concomitant]

REACTIONS (10)
  - JAW DISORDER [None]
  - INFUSION RELATED REACTION [None]
  - COUGH [None]
  - DYSPNOEA [None]
  - LOCAL SWELLING [None]
  - OEDEMA PERIPHERAL [None]
  - OXYGEN SATURATION DECREASED [None]
  - SWOLLEN TONGUE [None]
  - SWELLING FACE [None]
  - ASTHENIA [None]
